FAERS Safety Report 4810772-X (Version None)
Quarter: 2005Q4

REPORT INFORMATION
  Report Type: 
  Country: None (occurrence: None)
  Receive Date: 20051024
  Receipt Date: 20051013
  Transmission Date: 20060501
  Serious: Yes (Other)
  Sender: FDA-Public Use
  Company Number: US015917

PATIENT
  Age: 1 Day
  Sex: Female
  Weight: 3.49 kg

DRUGS (4)
  1. PROVIGIL [Suspect]
     Indication: SOMNOLENCE
     Dosage: 400 MG QD TRANSPLACENTAL
     Route: 064
     Dates: start: 20040901, end: 20050822
  2. METFORMIN HCL [Concomitant]
  3. ZOLOFT [Concomitant]
  4. PERCOCET [Concomitant]

REACTIONS (4)
  - APGAR SCORE LOW [None]
  - CONVULSION NEONATAL [None]
  - DRUG EXPOSURE DURING PREGNANCY [None]
  - RESPIRATORY DISORDER NEONATAL [None]
